FAERS Safety Report 19475002 (Version 1)
Quarter: 2021Q2

REPORT INFORMATION
  Report Type: Spontaneous
  Country: US (occurrence: US)
  Receive Date: 20210630
  Receipt Date: 20210630
  Transmission Date: 20210717
  Serious: No
  Sender: FDA-Public Use
  Company Number: US-PRINSTON PHARMACEUTICAL INC.-2021PRN00073

PATIENT
  Sex: Male

DRUGS (1)
  1. DULOXETINE. [Suspect]
     Active Substance: DULOXETINE
     Indication: DEPRESSION
     Dosage: UNK, 1X/DAY

REACTIONS (5)
  - Product substitution issue [Recovered/Resolved]
  - Mood swings [Recovered/Resolved]
  - Depression [Recovering/Resolving]
  - Drug ineffective [Recovered/Resolved]
  - Suspected product quality issue [Recovered/Resolved]
